FAERS Safety Report 20611518 (Version 2)
Quarter: 2022Q2

REPORT INFORMATION
  Report Type: Spontaneous
  Country: JP (occurrence: JP)
  Receive Date: 20220318
  Receipt Date: 20220627
  Transmission Date: 20220720
  Serious: Yes (Hospitalization, Other)
  Sender: FDA-Public Use
  Company Number: JP-ELI_LILLY_AND_COMPANY-JP202203004995

PATIENT
  Age: 75 Year
  Sex: Female

DRUGS (4)
  1. CYRAMZA [Suspect]
     Active Substance: RAMUCIRUMAB
     Indication: Colon cancer
     Dosage: 6.4 MG/KG, OTHER
     Route: 041
     Dates: start: 20201007, end: 20201021
  2. FLUOROURACIL [Concomitant]
     Active Substance: FLUOROURACIL
     Indication: Colon cancer
     Dosage: UNK UNK, OTHER
     Dates: start: 20201007, end: 20201021
  3. LEVOLEUCOVORIN CALCIUM [Concomitant]
     Active Substance: LEVOLEUCOVORIN CALCIUM
     Indication: Colon cancer
     Dosage: UNK
     Dates: start: 20201007, end: 20201021
  4. IRINOTECAN [Concomitant]
     Active Substance: IRINOTECAN
     Indication: Colon cancer
     Dosage: 144 MG/M2, OTHER
     Route: 041
     Dates: start: 20201007, end: 20201021

REACTIONS (5)
  - Anastomotic complication [Recovered/Resolved]
  - Focal peritonitis [Recovered/Resolved]
  - Impaired healing [Recovered/Resolved]
  - Skin ulcer [Unknown]
  - Postoperative wound infection [Recovered/Resolved]

NARRATIVE: CASE EVENT DATE: 20201019
